FAERS Safety Report 21571367 (Version 1)
Quarter: 2022Q4

REPORT INFORMATION
  Report Type: Spontaneous
  Country: US (occurrence: US)
  Receive Date: 20221109
  Receipt Date: 20221109
  Transmission Date: 20230113
  Serious: No
  Sender: FDA-Public Use
  Company Number: US-BAUSCHBL-2022BNL001738

PATIENT
  Age: 42 Year
  Sex: Male

DRUGS (2)
  1. BEPREVE [Suspect]
     Active Substance: BEPOTASTINE BESILATE
     Indication: Ocular hyperaemia
     Route: 047
     Dates: start: 20221025, end: 202210
  2. BEPREVE [Suspect]
     Active Substance: BEPOTASTINE BESILATE
     Indication: Dry eye

REACTIONS (3)
  - Muscle twitching [Recovering/Resolving]
  - Dysgeusia [Recovering/Resolving]
  - Swollen tongue [Recovering/Resolving]

NARRATIVE: CASE EVENT DATE: 20221001
